FAERS Safety Report 6099793-X (Version None)
Quarter: 2009Q1

REPORT INFORMATION
  Report Type: 
  Country: None (occurrence: None)
  Receive Date: 20090303
  Receipt Date: 20090217
  Transmission Date: 20090719
  Serious: Yes (Other)
  Sender: FDA-Public Use
  Company Number: PHHY2009AU05624

PATIENT
  Sex: Male

DRUGS (3)
  1. CLOZARIL [Suspect]
     Dosage: 700 MG/DAY
     Dates: start: 20070417
  2. METRONIDAZOLE [Interacting]
     Indication: GASTROINTESTINAL DISORDER
     Dosage: 400 MG, TID
  3. CIPROFLOXACIN [Interacting]
     Indication: GASTROINTESTINAL DISORDER
     Dosage: 250 MG, BID

REACTIONS (4)
  - DRUG INTERACTION [None]
  - ELECTROCARDIOGRAM QT PROLONGED [None]
  - GASTROINTESTINAL DISORDER [None]
  - TACHYCARDIA [None]
